FAERS Safety Report 7654440-8 (Version None)
Quarter: 2011Q3

REPORT INFORMATION
  Report Type: 
  Country: None (occurrence: None)
  Receive Date: 20110803
  Receipt Date: 20110725
  Transmission Date: 20111222
  Serious: Yes (Hospitalization)
  Sender: FDA-Public Use
  Company Number: FR-ASTRAZENECA-2011SE44340

PATIENT
  Age: 22636 Day
  Sex: Male

DRUGS (3)
  1. COLCHICINE [Concomitant]
     Route: 048
  2. CO-KENZEN [Concomitant]
     Indication: HYPERTENSION
     Dosage: UNKNOWN DOSE DAILY
     Route: 048
     Dates: end: 20110401
  3. ATACAND [Suspect]
     Indication: HYPERTENSION
     Route: 048
     Dates: start: 20110502, end: 20110525

REACTIONS (1)
  - DERMATITIS EXFOLIATIVE [None]
